FAERS Safety Report 8285744 (Version 2)
Quarter: 2013Q3

REPORT INFORMATION
  Report Type: Spontaneous
  Country: JP (occurrence: JP)
  Receive Date: 20111213
  Receipt Date: 20130812
  Transmission Date: 20140515
  Serious: Yes (Death)
  Sender: FDA-Public Use
  Company Number: JP-ASTELLAS-2011JP009010

PATIENT
  Age: 64 Year
  Sex: Male

DRUGS (8)
  1. FUNGUARD [Suspect]
     Indication: PNEUMONIA
     Dosage: 150 MG, UNKNOWN/D
     Route: 065
  2. FUNGUARD [Suspect]
     Indication: BRONCHOPULMONARY ASPERGILLOSIS
     Dosage: 300 MG, UNKNOWN/D
     Route: 065
  3. LEVOFLOXACIN [Concomitant]
     Indication: PNEUMONIA
     Dosage: UNK
     Route: 065
  4. SULBACTAM-AMPICILLIN [Concomitant]
     Indication: PNEUMONIA
     Dosage: 6 G, UNKNOWN/D
     Route: 065
  5. MEROPENEM [Concomitant]
     Indication: PNEUMONIA
     Dosage: 2 G, UNKNOWN/D
     Route: 065
  6. MEROPENEM [Concomitant]
     Indication: PNEUMONIA
     Dosage: 1 G, TID
     Route: 065
  7. NORADRENALINE                      /00127501/ [Concomitant]
     Dosage: UNK
     Route: 065
  8. MINOCYCLINE [Concomitant]
     Indication: PNEUMONIA
     Dosage: 100 MG, BID
     Route: 065

REACTIONS (2)
  - Drug ineffective [Unknown]
  - Bronchopulmonary aspergillosis [Fatal]
